FAERS Safety Report 5310285-5 (Version None)
Quarter: 2007Q2

REPORT INFORMATION
  Report Type: 
  Country: None (occurrence: None)
  Receive Date: 20070427
  Receipt Date: 20070419
  Transmission Date: 20071010
  Serious: Yes (Other)
  Sender: FDA-Public Use
  Company Number: FR-SANOFI-SYNTHELABO-A01200704224

PATIENT
  Age: 66 Year
  Sex: Male

DRUGS (8)
  1. STATINS [Concomitant]
     Indication: DRUG USE FOR UNKNOWN INDICATION
     Dosage: UNK
     Route: 065
  2. INSULIN [Concomitant]
     Indication: DIABETES MELLITUS INSULIN-DEPENDENT
     Dosage: UNK
     Route: 065
  3. CELANCE [Concomitant]
     Indication: PARKINSON'S DISEASE
     Dosage: UNK
     Route: 065
  4. SINEMET [Concomitant]
     Indication: PARKINSON'S DISEASE
     Dosage: UNK
     Route: 065
  5. NEORECORMON [Concomitant]
     Indication: REFRACTORY ANAEMIA
     Dosage: UNK
     Route: 065
  6. PENTOFLUX [Concomitant]
     Indication: ARTERITIS
     Dosage: UNK
     Route: 065
  7. TAREG [Concomitant]
     Indication: HYPERTENSION
     Dosage: UNK
     Route: 065
  8. PLAVIX [Suspect]
     Indication: ARTERITIS
     Dosage: UNK
     Route: 048

REACTIONS (3)
  - DEEP VEIN THROMBOSIS [None]
  - HAEMATOMA [None]
  - RASH [None]
